FAERS Safety Report 7895124-0 (Version None)
Quarter: 2011Q4

REPORT INFORMATION
  Report Type: 
  Country: None (occurrence: None)
  Receive Date: 20111106
  Receipt Date: 20110823
  Transmission Date: 20120403
  Serious: No
  Sender: FDA-Public Use
  Company Number: US-AMGEN-USASP2011043083

PATIENT
  Sex: Female

DRUGS (3)
  1. ENBREL [Suspect]
     Indication: RHEUMATOID ARTHRITIS
     Dosage: 50 MG, QWK
     Dates: start: 20110624
  2. ENBREL [Suspect]
     Indication: OSTEOARTHRITIS
  3. TREXALL [Concomitant]
     Dosage: UNK UNK, QWK
     Route: 048
     Dates: start: 20110201

REACTIONS (6)
  - WEIGHT INCREASED [None]
  - JOINT SWELLING [None]
  - ARTHRALGIA [None]
  - INJECTION SITE ERYTHEMA [None]
  - BLISTER [None]
  - MYALGIA [None]
